FAERS Safety Report 13273948 (Version 1)
Quarter: 2017Q1

REPORT INFORMATION
  Report Type: Spontaneous
  Country: US (occurrence: US)
  Receive Date: 20170227
  Receipt Date: 20170227
  Transmission Date: 20170428
  Serious: No
  Sender: FDA-Public Use
  Company Number: US-BAYER-2017-035077

PATIENT
  Sex: Female

DRUGS (2)
  1. ALEVE [Suspect]
     Active Substance: NAPROXEN SODIUM
     Indication: NERVE COMPRESSION
  2. ALEVE [Suspect]
     Active Substance: NAPROXEN SODIUM
     Indication: MALAISE
     Dosage: UNK
     Route: 048

REACTIONS (4)
  - Poor quality drug administered [Unknown]
  - Drug ineffective for unapproved indication [Unknown]
  - Product use issue [Unknown]
  - Product coating issue [Unknown]
